FAERS Safety Report 9044910 (Version 1)
Quarter: 2013Q1

REPORT INFORMATION
  Report Type: Report from Study
  Country: JP (occurrence: JP)
  Receive Date: 20130130
  Receipt Date: 20130130
  Transmission Date: 20140127
  Serious: Yes (Other)
  Sender: FDA-Public Use
  Company Number: JP-GLAXOSMITHKLINE-B0860651A

PATIENT
  Age: 44 None
  Sex: Female
  Weight: 52 kg

DRUGS (10)
  1. ARRANON [Suspect]
     Indication: T-CELL TYPE ACUTE LEUKAEMIA
     Dosage: 1500MGM2 PER DAY
     Route: 042
     Dates: start: 20100713, end: 20100717
  2. ARRANON [Suspect]
     Indication: T-CELL TYPE ACUTE LEUKAEMIA
     Dosage: 1500MGM2 PER DAY
     Route: 042
     Dates: start: 20100817, end: 20100821
  3. CYTARABINE [Concomitant]
     Indication: NEOPLASM MALIGNANT
     Route: 042
     Dates: start: 20100701, end: 20100704
  4. LASTET [Concomitant]
     Indication: NEOPLASM MALIGNANT
     Route: 042
     Dates: start: 20100701, end: 20100703
  5. DEXART [Concomitant]
     Indication: NEOPLASM MALIGNANT
     Dates: start: 20100701, end: 20100703
  6. BAKTAR [Concomitant]
     Indication: PROPHYLAXIS
     Route: 048
     Dates: start: 20100713, end: 20100930
  7. OMEPRAL [Concomitant]
     Indication: PROPHYLAXIS
     Route: 048
     Dates: start: 20100713, end: 20100930
  8. MIYA-BM [Concomitant]
     Indication: PROPHYLAXIS
     Route: 048
     Dates: start: 20100713, end: 20100930
  9. CIPROXAN [Concomitant]
     Indication: PROPHYLAXIS
     Route: 048
     Dates: start: 20100713, end: 20100930
  10. FUNGUARD [Concomitant]
     Indication: PROPHYLAXIS
     Route: 042
     Dates: start: 20100713, end: 20100720

REACTIONS (5)
  - Cytomegalovirus viraemia [Recovered/Resolved]
  - Gait disturbance [Recovered/Resolved]
  - Febrile neutropenia [Recovered/Resolved]
  - Decreased appetite [Recovered/Resolved]
  - Hypoaesthesia [Not Recovered/Not Resolved]
